FAERS Safety Report 6337096-6 (Version None)
Quarter: 2009Q3

REPORT INFORMATION
  Report Type: 
  Country: None (occurrence: None)
  Receive Date: 20090831
  Receipt Date: 20090817
  Transmission Date: 20100115
  Serious: Yes (Hospitalization)
  Sender: FDA-Public Use
  Company Number: 2008AL004073

PATIENT
  Age: 61 Year
  Sex: Female

DRUGS (64)
  1. DIGOXIN [Suspect]
     Dosage: 0.25MG, DAILY, PO
     Route: 048
     Dates: end: 20080501
  2. CELEXA [Concomitant]
  3. COMBIVENT [Concomitant]
  4. GLIPIZIDE [Concomitant]
  5. NEXIUM [Concomitant]
  6. EFFEXOR [Concomitant]
  7. FUROSEMIDE [Concomitant]
  8. GLUCOPHAGE [Concomitant]
  9. NOVOLIN R [Concomitant]
  10. NITROGLYCERIN [Concomitant]
  11. TOPROL-XL [Concomitant]
  12. PLAVIX [Concomitant]
  13. ASPIRIN [Concomitant]
  14. CARDIZEM [Concomitant]
  15. ZPCPR [Concomitant]
  16. VITAMIN E [Concomitant]
  17. LORAZEPAM [Concomitant]
  18. DILAUDID [Concomitant]
  19. CLOPIDOGREL [Concomitant]
  20. TOPROL-XL [Concomitant]
  21. DILTIAZEM [Concomitant]
  22. LIPITOR [Concomitant]
  23. ACTOS [Concomitant]
  24. METFORMIN HCL [Concomitant]
  25. FENTANYL TRANSDERMAL SYSTEM [Concomitant]
  26. MULTI-VITAMIN [Concomitant]
  27. HYDROCODONE BITARTRATE + ACETAMINOPHEN [Concomitant]
  28. DIAZEPAM [Concomitant]
  29. CEFUROXIME [Concomitant]
  30. OXYCODONE HCL AND ACETAMINOPHEN [Concomitant]
  31. WARFARIN SODIUM [Concomitant]
  32. CANASA [Concomitant]
  33. NEXIUM [Concomitant]
  34. NITROGLYCERIN [Concomitant]
  35. MEPERITAB [Concomitant]
  36. NITROFURANTOIN [Concomitant]
  37. TEMAZEPAM [Concomitant]
  38. ACETAMINOPHEN W/ CODEINE TAB [Concomitant]
  39. HYDROMORPHONE [Concomitant]
  40. PROPOXYPHENE-N [Concomitant]
  41. ACCYZYME [Concomitant]
  42. ALPRAZOLAM [Concomitant]
  43. FLUCONAZOLE [Concomitant]
  44. LEVAQUIN [Concomitant]
  45. VIGAMOX [Concomitant]
  46. LANTUS [Concomitant]
  47. CARTIA XT [Concomitant]
  48. KENALOG [Concomitant]
  49. TAZTIA [Concomitant]
  50. CELEXA [Concomitant]
  51. CITALOPRAM HYDROBROMIDE [Concomitant]
  52. GLUCOTROL [Concomitant]
  53. BEXTRA [Concomitant]
  54. ATENOLOL [Concomitant]
  55. DETROL [Concomitant]
  56. TRAMADOL HCL [Concomitant]
  57. DOXYCYCLINE [Concomitant]
  58. IPRATROPIUM [Concomitant]
  59. ALBUTEROL [Concomitant]
  60. DITROPAN [Concomitant]
  61. CLARITIN [Concomitant]
  62. DIPHENOXYLATE HCL + ATROPINE SULFATE [Concomitant]
  63. ULTRAM [Concomitant]
  64. CEPHALEXIN [Concomitant]

REACTIONS (40)
  - ABASIA [None]
  - ANAEMIA [None]
  - ANAL SPHINCTER ATONY [None]
  - ANGINA UNSTABLE [None]
  - ANXIETY [None]
  - APHASIA [None]
  - ARTHRALGIA [None]
  - BACK PAIN [None]
  - BENIGN CARDIAC NEOPLASM [None]
  - BRONCHITIS [None]
  - CARDIAC FAILURE CONGESTIVE [None]
  - CHEST PAIN [None]
  - CHRONIC OBSTRUCTIVE PULMONARY DISEASE [None]
  - COLONIC POLYP [None]
  - COMPUTERISED TOMOGRAM ABNORMAL [None]
  - CONDITION AGGRAVATED [None]
  - CONFUSIONAL STATE [None]
  - COUGH [None]
  - DIARRHOEA HAEMORRHAGIC [None]
  - DIZZINESS [None]
  - DYSPNOEA [None]
  - DYSSTASIA [None]
  - ECONOMIC PROBLEM [None]
  - FALL [None]
  - GASTROINTESTINAL HAEMORRHAGE [None]
  - HAEMORRHOIDS [None]
  - HALLUCINATION [None]
  - HEART RATE DECREASED [None]
  - HEPATIC STEATOSIS [None]
  - INJURY [None]
  - LOWER LIMB FRACTURE [None]
  - MELAENA [None]
  - MUSCULAR WEAKNESS [None]
  - NAUSEA [None]
  - PAIN [None]
  - RECTAL HAEMORRHAGE [None]
  - SCAN ABDOMEN ABNORMAL [None]
  - THERAPEUTIC AGENT TOXICITY [None]
  - TRANSIENT ISCHAEMIC ATTACK [None]
  - UTERINE POLYP [None]
